APPROVED DRUG PRODUCT: ZEPBOUND
Active Ingredient: TIRZEPATIDE
Strength: 7.5MG/0.5ML (7.5MG/0.5ML)
Dosage Form/Route: SOLUTION;SUBCUTANEOUS
Application: N217806 | Product #009
Applicant: ELI LILLY AND CO
Approved: Mar 28, 2024 | RLD: Yes | RS: Yes | Type: RX

PATENTS:
Patent 12343382 | Expires: Jul 22, 2039
Patent 12343382 | Expires: Jul 22, 2039
Patent 12453758 | Expires: Jul 22, 2039
Patent 12453758 | Expires: Jul 22, 2039
Patent 12453758 | Expires: Jul 22, 2039
Patent 12453758 | Expires: Jul 22, 2039
Patent 11918623 | Expires: Jun 14, 2039
Patent 9474780 | Expires: Jan 5, 2036
Patent 12453756 | Expires: Jun 14, 2039
Patent 11357820 | Expires: Jun 14, 2039

EXCLUSIVITY:
Code: I-958 | Date: Dec 20, 2027
Code: M-82 | Date: Oct 18, 2027
Code: NCE | Date: May 13, 2027